FAERS Safety Report 9456829 (Version 1)
Quarter: 2013Q3

REPORT INFORMATION
  Report Type: Spontaneous
  Country: US (occurrence: US)
  Receive Date: 20130813
  Receipt Date: 20130813
  Transmission Date: 20140515
  Serious: No
  Sender: FDA-Public Use
  Company Number: US-TEVA-425431USA

PATIENT
  Sex: Female

DRUGS (3)
  1. PROAIR HFA [Suspect]
  2. ZYRTEC [Concomitant]
  3. CLARITIN [Concomitant]

REACTIONS (1)
  - Rash [Unknown]
